FAERS Safety Report 7354803-4 (Version None)
Quarter: 2011Q1

REPORT INFORMATION
  Report Type: 
  Country: None (occurrence: None)
  Receive Date: 20110311
  Receipt Date: 20110311
  Transmission Date: 20110831
  Serious: Yes (Other)
  Sender: FDA-Public Use
  Company Number: None

PATIENT
  Age: 74 Year
  Sex: Female
  Weight: 63.5036 kg

DRUGS (2)
  1. RYTHMOL [Suspect]
  2. PROPAFENONE HCL [Suspect]
     Indication: ATRIAL FIBRILLATION
     Dosage: 300MG 3 X DAY
     Dates: start: 20090904, end: 20100115

REACTIONS (5)
  - DIZZINESS [None]
  - WEIGHT DECREASED [None]
  - ASTHENIA [None]
  - DIARRHOEA [None]
  - NAUSEA [None]
